FAERS Safety Report 5982680-2 (Version None)
Quarter: 2008Q4

REPORT INFORMATION
  Report Type: 
  Country: None (occurrence: None)
  Receive Date: 20081208
  Receipt Date: 20081124
  Transmission Date: 20090506
  Serious: Yes (Other)
  Sender: FDA-Public Use
  Company Number: CA-NOVOPROD-281418

PATIENT
  Age: 42 Year
  Sex: Female
  Weight: 131.52 kg

DRUGS (10)
  1. NOVOLOG MIX 70/30 [Suspect]
     Indication: TYPE 2 DIABETES MELLITUS
     Dosage: 106 U, QD
     Route: 058
     Dates: start: 20081018, end: 20081112
  2. NOVOLIN GE 30/70 [Concomitant]
     Indication: TYPE 2 DIABETES MELLITUS
     Dates: start: 20070101
  3. ZOPICLONE [Concomitant]
  4. SEROQUEL [Concomitant]
  5. CITALOPRAM HYDROBROMIDE [Concomitant]
  6. LIPITOR [Concomitant]
  7. PANTOLOC                           /01263201/ [Concomitant]
  8. SUMATRIPTAN [Concomitant]
  9. METFORMIN HCL [Concomitant]
  10. DIOVAN                             /01319601/ [Concomitant]

REACTIONS (2)
  - INJECTION SITE HAEMATOMA [None]
  - INJECTION SITE URTICARIA [None]
